FAERS Safety Report 4483825-6 (Version None)
Quarter: 2004Q4

REPORT INFORMATION
  Report Type: 
  Country: None (occurrence: None)
  Receive Date: 20041025
  Receipt Date: 20040916
  Transmission Date: 20050328
  Serious: Yes (Life-Threatening)
  Sender: FDA-Public Use
  Company Number: 200419139GDDC

PATIENT
  Age: 71 Year
  Sex: Female

DRUGS (3)
  1. LORELCO [Suspect]
     Indication: HYPERLIPIDAEMIA
     Route: 048
     Dates: end: 20040131
  2. FUROSEMIDE [Suspect]
     Route: 048
     Dates: end: 20040201
  3. ATENOLOL [Suspect]
     Route: 048
     Dates: end: 20040131

REACTIONS (15)
  - CARDIAC FIBRILLATION [None]
  - CARDIOMEGALY [None]
  - COUGH [None]
  - DRUG INEFFECTIVE [None]
  - ELECTROCARDIOGRAM QT PROLONGED [None]
  - ELECTROLYTE IMBALANCE [None]
  - LOSS OF CONSCIOUSNESS [None]
  - MALAISE [None]
  - NODAL RHYTHM [None]
  - OEDEMA PERIPHERAL [None]
  - PHARYNGOLARYNGEAL PAIN [None]
  - PLEURAL EFFUSION [None]
  - SYNCOPE [None]
  - TORSADE DE POINTES [None]
  - VENTRICULAR TACHYCARDIA [None]
